FAERS Safety Report 14986656 (Version 4)
Quarter: 2018Q3

REPORT INFORMATION
  Report Type: Report from Study
  Country: None (occurrence: DE)
  Receive Date: 20180608
  Receipt Date: 20180702
  Transmission Date: 20181010
  Serious: Yes (Hospitalization)
  Sender: FDA-Public Use
  Company Number: DE-ABBVIE-18K-062-2380668-00

PATIENT
  Age: 74 Year
  Sex: Female

DRUGS (6)
  1. MADOPAR DEPOT [Concomitant]
     Active Substance: BENSERAZIDE HYDROCHLORIDE\LEVODOPA
     Indication: PRODUCT USED FOR UNKNOWN INDICATION
  2. CITALOPRAM [Concomitant]
     Active Substance: CITALOPRAM HYDROBROMIDE
     Indication: PRODUCT USED FOR UNKNOWN INDICATION
  3. DEHYDRO SANOL TRI [Concomitant]
     Indication: PRODUCT USED FOR UNKNOWN INDICATION
  4. MADOPAR LT [Concomitant]
     Active Substance: BENSERAZIDE HYDROCHLORIDE\LEVODOPA
     Indication: PRODUCT USED FOR UNKNOWN INDICATION
  5. DUODOPA [Suspect]
     Active Substance: CARBIDOPA\LEVODOPA
     Indication: PARKINSON^S DISEASE
     Dosage: MD 8 ML; CRD 3.4 ML/HR; ED 0.5 ML
     Route: 050
     Dates: start: 20150504
  6. L?THYROXINE [Concomitant]
     Active Substance: LEVOTHYROXINE
     Indication: PRODUCT USED FOR UNKNOWN INDICATION

REACTIONS (7)
  - Infection [Not Recovered/Not Resolved]
  - Hypokinesia [Unknown]
  - Decreased appetite [Not Recovered/Not Resolved]
  - Device deployment issue [Unknown]
  - Intussusception [Unknown]
  - Gastrointestinal infection [Unknown]
  - Akinesia [Unknown]

NARRATIVE: CASE EVENT DATE: 201805
